FAERS Safety Report 8560423 (Version 8)
Quarter: 2014Q2

REPORT INFORMATION
  Report Type: Spontaneous
  Country: GB (occurrence: GB)
  Receive Date: 20120514
  Receipt Date: 20140408
  Transmission Date: 20141212
  Serious: Yes (Hospitalization)
  Sender: FDA-Public Use
  Company Number: PHFR2011GB05226

PATIENT
  Age: 30 Year
  Sex: Male

DRUGS (11)
  1. CLOZARIL [Suspect]
     Indication: PSYCHIATRIC SYMPTOM
     Dosage: 400 MG/DAY
     Route: 048
     Dates: start: 20101213
  2. CLOZARIL [Suspect]
     Indication: PSYCHOTIC DISORDER
     Dosage: 450 MG, UNK
     Route: 048
  3. EPILIM CHRONO [Concomitant]
     Indication: AFFECTIVE DISORDER
     Dosage: 800 MG/DAY
     Route: 048
  4. EPILIM CHRONO [Concomitant]
     Dosage: 1500 MG, UNK
     Route: 048
  5. AMITRIPTYLINE [Concomitant]
     Dosage: 100 MG/DAY
     Route: 048
  6. PROPRANOLOL [Concomitant]
     Indication: ANXIETY
     Dosage: 40 MG, UNK
  7. PROPRANOLOL [Concomitant]
     Dosage: 80 MG, UNK
     Route: 048
  8. ESOMEPRAZOLE [Concomitant]
     Dosage: 300 MG/DAY
     Route: 048
  9. MIRTAZAPINE [Concomitant]
     Indication: DEPRESSED MOOD
     Dosage: 45 MG, IN MANE
     Route: 048
  10. MIRTAZAPINE [Concomitant]
     Indication: AFFECTIVE DISORDER
  11. LAMOTRIGINE [Concomitant]
     Indication: AFFECTIVE DISORDER
     Dosage: 100 MG, UNK
     Route: 048

REACTIONS (12)
  - Lower respiratory tract infection [Recovered/Resolved]
  - Pyrexia [Recovered/Resolved]
  - Infection [Unknown]
  - Mean cell haemoglobin decreased [Not Recovered/Not Resolved]
  - Mean cell haemoglobin concentration decreased [Unknown]
  - General physical health deterioration [Recovering/Resolving]
  - Haemoglobin decreased [Unknown]
  - White blood cell count increased [Recovering/Resolving]
  - Neutrophil count increased [Recovered/Resolved]
  - Differential white blood cell count abnormal [Recovering/Resolving]
  - Monocyte count increased [Not Recovered/Not Resolved]
  - Lymphocyte count increased [Not Recovered/Not Resolved]
